FAERS Safety Report 5524187-2 (Version None)
Quarter: 2007Q4

REPORT INFORMATION
  Report Type: 
  Country: None (occurrence: None)
  Receive Date: 20071121
  Receipt Date: 20071112
  Transmission Date: 20080405
  Serious: Yes (Other)
  Sender: FDA-Public Use
  Company Number: US-PFIZER INC-2007047968

PATIENT
  Sex: Male
  Weight: 86.2 kg

DRUGS (7)
  1. NEURONTIN [Suspect]
     Indication: SPINAL CORD INJURY
  2. NEURONTIN [Suspect]
     Indication: NEUROPATHY
  3. NEURONTIN [Suspect]
     Indication: SURGERY
  4. NEURONTIN [Suspect]
     Indication: NEURALGIA
  5. HYDROCODONE BITARTRATE [Concomitant]
  6. LOTREL [Concomitant]
  7. CLONIDINE [Concomitant]

REACTIONS (9)
  - EATING DISORDER [None]
  - GINGIVAL BLEEDING [None]
  - SINUSITIS [None]
  - TEETH BRITTLE [None]
  - TOOTH ABSCESS [None]
  - TOOTH DISORDER [None]
  - TOOTH EROSION [None]
  - TOOTH LOSS [None]
  - WEIGHT DECREASED [None]
